FAERS Safety Report 5838860-X (Version None)
Quarter: 2008Q3

REPORT INFORMATION
  Report Type: 
  Country: None (occurrence: None)
  Receive Date: 20080808
  Receipt Date: 20080709
  Transmission Date: 20090109
  Serious: No
  Sender: FDA-Public Use
  Company Number: US-ABBOTT-08P-163-0462363-00

PATIENT
  Age: 32 Year
  Sex: Female

DRUGS (5)
  1. KALETRA [Suspect]
     Indication: HIV INFECTION
     Dosage: 200 MG /50 MG
     Route: 048
     Dates: start: 20071217
  2. LAMIVUDINE + ZIDOVUDINE [Suspect]
     Indication: HIV INFECTION
     Route: 048
     Dates: start: 20071217
  3. ZIDOVUDINE [Suspect]
     Indication: HIV INFECTION
     Dosage: 2 MG/KG, X1; THEN 1 MG/KG UNTIL DELIVERY
     Route: 042
     Dates: start: 20080514, end: 20080514
  4. GABAPENTIN [Suspect]
     Indication: DRUG USE FOR UNKNOWN INDICATION
  5. ACYCLOVIR SODIUM [Suspect]
     Indication: DRUG USE FOR UNKNOWN INDICATION

REACTIONS (1)
  - HERPES ZOSTER [None]
